FAERS Safety Report 21074094 (Version 1)
Quarter: 2022Q3

REPORT INFORMATION
  Report Type: Spontaneous
  Country: US (occurrence: US)
  Receive Date: 20220713
  Receipt Date: 20220713
  Transmission Date: 20221027
  Serious: Yes (Other)
  Sender: FDA-Public Use
  Company Number: US-SUN PHARMACEUTICAL INDUSTRIES LTD-2022R1-343965

PATIENT
  Age: 25 Year
  Sex: Male

DRUGS (8)
  1. DEXAMETHASONE [Suspect]
     Active Substance: DEXAMETHASONE
     Indication: Malaise
     Dosage: UNK
     Route: 065
  2. DEXAMETHASONE [Suspect]
     Active Substance: DEXAMETHASONE
     Indication: Pyrexia
  3. DEXAMETHASONE [Suspect]
     Active Substance: DEXAMETHASONE
     Indication: Chills
  4. DEXAMETHASONE [Suspect]
     Active Substance: DEXAMETHASONE
     Indication: Dyspnoea exertional
  5. TOCILIZUMAB [Suspect]
     Active Substance: TOCILIZUMAB
     Indication: Malaise
     Dosage: UNK
     Route: 065
  6. TOCILIZUMAB [Suspect]
     Active Substance: TOCILIZUMAB
     Indication: Pyrexia
  7. TOCILIZUMAB [Suspect]
     Active Substance: TOCILIZUMAB
     Indication: Chills
  8. TOCILIZUMAB [Suspect]
     Active Substance: TOCILIZUMAB
     Indication: Dyspnoea exertional

REACTIONS (2)
  - Condition aggravated [Unknown]
  - Respiratory distress [Unknown]
